FAERS Safety Report 6925904-7 (Version None)
Quarter: 2010Q3

REPORT INFORMATION
  Report Type: 
  Country: None (occurrence: None)
  Receive Date: 20100816
  Receipt Date: 20100802
  Transmission Date: 20110219
  Serious: Yes (Disabling, Other)
  Sender: FDA-Public Use
  Company Number: PHHY2010US48605

PATIENT
  Sex: Female

DRUGS (8)
  1. ZOMETA [Suspect]
     Dosage: UNK
     Dates: start: 20030101, end: 20100215
  2. VITAMINS [Concomitant]
  3. HERBS [Concomitant]
  4. THYROID MEDICATION [Concomitant]
  5. CELEBREX [Concomitant]
     Dosage: UNK
  6. MEDROL [Concomitant]
  7. THALIDOMIDE [Concomitant]
     Dosage: UNK
  8. DEXAMETHASONE [Concomitant]
     Dosage: UNK

REACTIONS (18)
  - ABASIA [None]
  - ACTIVITIES OF DAILY LIVING IMPAIRED [None]
  - BENIGN BONE NEOPLASM [None]
  - BONE DISORDER [None]
  - BONE OPERATION [None]
  - BONE PAIN [None]
  - CONTUSION [None]
  - EXOSTOSIS [None]
  - FALL [None]
  - FEMUR FRACTURE [None]
  - IMPAIRED HEALING [None]
  - INFLUENZA LIKE ILLNESS [None]
  - JOINT SPRAIN [None]
  - OEDEMA PERIPHERAL [None]
  - PAIN IN EXTREMITY [None]
  - WALKING AID USER [None]
  - WEIGHT BEARING DIFFICULTY [None]
  - WHEELCHAIR USER [None]
